FAERS Safety Report 5274718-5 (Version None)
Quarter: 2007Q1

REPORT INFORMATION
  Report Type: 
  Country: None (occurrence: None)
  Receive Date: 20070320
  Receipt Date: 20070313
  Transmission Date: 20070707
  Serious: Yes (Disabling, Other)
  Sender: FDA-Public Use
  Company Number: 163-20785-07020528

PATIENT
  Age: 71 Year
  Sex: Male

DRUGS (2)
  1. THALOMID [Suspect]
     Indication: CYTOGENETIC ANALYSIS ABNORMAL
     Dosage: 100 MG, 1 IN 1 D, ORAL
     Route: 048
     Dates: start: 20061010, end: 20061104
  2. THALOMID [Suspect]
     Indication: MULTIPLE MYELOMA
     Dosage: 100 MG, 1 IN 1 D, ORAL
     Route: 048
     Dates: start: 20061010, end: 20061104

REACTIONS (8)
  - BRADYCARDIA [None]
  - CARDIAC DISORDER [None]
  - DRUG INTOLERANCE [None]
  - DRUG TOXICITY [None]
  - FATIGUE [None]
  - MALAISE [None]
  - ORTHOSTATIC HYPOTENSION [None]
  - PRESYNCOPE [None]
